FAERS Safety Report 7575365 (Version 6)
Quarter: 2012Q4

REPORT INFORMATION
  Report Type: 
  Country: NZ (occurrence: NZ)
  Receive Date: 20100907
  Receipt Date: 20121017
  Transmission Date: 20130627
  Serious: Yes (Hospitalization, Disabling, Other)
  Sender: FDA-Public Use
  Company Number: PHHY2010NZ57979

PATIENT
  Age: 51 None
  Sex: Female

DRUGS (2)
  1. CLOZARIL [Suspect]
     Indication: SCHIZOPHRENIA
     Dosage: 250 mg, nocte
     Route: 048
     Dates: start: 20091111, end: 201205
  2. CLOZARIL [Suspect]
     Dates: start: 20121002

REACTIONS (4)
  - Vertigo [Recovered/Resolved]
  - Dizziness [Recovered/Resolved]
  - Gait disturbance [Not Recovered/Not Resolved]
  - Palpitations [Not Recovered/Not Resolved]
